FAERS Safety Report 8093795-X (Version None)
Quarter: 2012Q1

REPORT INFORMATION
  Report Type: 
  Country: None (occurrence: None)
  Receive Date: 20120129
  Receipt Date: 20110929
  Transmission Date: 20120608
  Serious: No
  Sender: FDA-Public Use
  Company Number: US-ABBOTT-11P-163-0859999-00

PATIENT
  Age: 40 Year
  Sex: Female

DRUGS (13)
  1. OXYCONTIN [Concomitant]
     Indication: PAIN
  2. AMBIEN [Concomitant]
     Indication: INSOMNIA
  3. METHOTREXATE [Concomitant]
     Indication: PRODUCT USED FOR UNKNOWN INDICATION
  4. HUMIRA [Suspect]
     Indication: ANKYLOSING SPONDYLITIS
     Dates: start: 20100501, end: 20110601
  5. NIFEDICAL SL [Concomitant]
     Indication: BLOOD PRESSURE
     Dosage: DAILY
  6. PREDNISONE TAB [Concomitant]
     Indication: CONDITION AGGRAVATED
     Dosage: TAPER
  7. PREDNISONE TAB [Concomitant]
     Dosage: TAPER
  8. PREDNISONE TAB [Concomitant]
     Dosage: TAPER
  9. VENLAFAXINE HCL EXTENDED-RELEASE [Concomitant]
     Indication: ANXIETY
     Dosage: DAILY
  10. HUMIRA [Suspect]
     Indication: RHEUMATOID ARTHRITIS
  11. VITAMIN B-12 [Concomitant]
     Indication: PRODUCT USED FOR UNKNOWN INDICATION
     Dosage: WEEKLY
     Route: 050
  12. TRIAMTERENE/WATER PILL [Concomitant]
     Indication: BLOOD PRESSURE
     Dosage: 37.5/25 MG DAILY
  13. PREDNISONE TAB [Concomitant]
     Dosage: TAPER

REACTIONS (2)
  - CONDITION AGGRAVATED [None]
  - CONTUSION [None]
